FAERS Safety Report 9163293 (Version 1)
Quarter: 2013Q1

REPORT INFORMATION
  Report Type: Spontaneous
  Country: US (occurrence: US)
  Receive Date: 20130314
  Receipt Date: 20130314
  Transmission Date: 20140127
  Serious: No
  Sender: FDA-Public Use
  Company Number: US-B.I. PHARMACEUTICALS,INC./RIDGEFIELD-2013-BI-06208BP

PATIENT
  Age: 6 Year
  Sex: Female
  Weight: 14 kg

DRUGS (5)
  1. MIRAPEX [Suspect]
     Indication: NERVOUS SYSTEM DISORDER
     Route: 048
  2. SELEGILINE HCL [Concomitant]
     Route: 048
  3. 5HTP [Concomitant]
  4. B6 PYRIDOXAL 5-PHOSPHATE [Concomitant]
  5. MELATONIN [Concomitant]

REACTIONS (6)
  - Sleep disorder [Unknown]
  - Nervous system disorder [Unknown]
  - Neurotransmitter level altered [Unknown]
  - Overdose [Not Recovered/Not Resolved]
  - Underdose [Unknown]
  - Product quality issue [Unknown]
